FAERS Safety Report 5456976-7 (Version None)
Quarter: 2007Q3

REPORT INFORMATION
  Report Type: 
  Country: None (occurrence: None)
  Receive Date: 20070918
  Receipt Date: 20070906
  Transmission Date: 20080115
  Serious: Yes (Life-Threatening, Disabling)
  Sender: FDA-Public Use
  Company Number: US-SANOFI-SYNTHELABO-A03200702042

PATIENT
  Age: 32 Year
  Sex: Male
  Weight: 68 kg

DRUGS (3)
  1. AMBIEN [Suspect]
     Indication: SLEEP DISORDER
     Route: 048
     Dates: start: 20051001, end: 20060201
  2. AMBIEN [Suspect]
     Route: 048
     Dates: start: 20040201, end: 20050901
  3. ALCOHOL [Concomitant]
     Dosage: DRANK ALCOHOL A ^COUPLE OF TIMES^ WHILE TAKING ZOLPIDEM
     Route: 048

REACTIONS (8)
  - AMNESIA [None]
  - DRUG ABUSER [None]
  - DRUG INEFFECTIVE [None]
  - EATING DISORDER [None]
  - IMPAIRED DRIVING ABILITY [None]
  - OVERDOSE [None]
  - ROAD TRAFFIC ACCIDENT [None]
  - SOMNAMBULISM [None]
